FAERS Safety Report 18477247 (Version 6)
Quarter: 2021Q2

REPORT INFORMATION
  Report Type: Report from Study
  Country: US (occurrence: US)
  Receive Date: 20201107
  Receipt Date: 20210415
  Transmission Date: 20210717
  Serious: Yes (Death, Hospitalization, Other)
  Sender: FDA-Public Use
  Company Number: NVSC2020US296888

PATIENT
  Sex: Male

DRUGS (1)
  1. ENTRESTO [Suspect]
     Active Substance: SACUBITRIL\VALSARTAN
     Indication: PRODUCT USED FOR UNKNOWN INDICATION
     Dosage: 100 MG (49/51 MG), BID
     Route: 048
     Dates: start: 202005

REACTIONS (8)
  - Confusional state [Recovered/Resolved]
  - Death [Fatal]
  - Product dose omission issue [Recovered/Resolved]
  - Fall [Unknown]
  - Spinal fracture [Unknown]
  - Pain [Unknown]
  - Cataract [Unknown]
  - Lethargy [Recovered/Resolved]
